FAERS Safety Report 13914099 (Version 1)
Quarter: 2017Q3

REPORT INFORMATION
  Report Type: Spontaneous
  Country: US (occurrence: US)
  Receive Date: 20170828
  Receipt Date: 20170828
  Transmission Date: 20171127
  Serious: No
  Sender: FDA-Public Use
  Company Number: US-ROCHE-1125365

PATIENT
  Sex: Male
  Weight: 74.1 kg

DRUGS (1)
  1. NUTROPIN [Suspect]
     Active Substance: SOMATROPIN
     Indication: GROWTH FAILURE
     Dosage: DOSE PER INJECTION 0.50 ML
     Route: 058

REACTIONS (3)
  - Headache [Unknown]
  - Abdominal pain upper [Unknown]
  - Breast discharge [Unknown]
